FAERS Safety Report 16691395 (Version 1)
Quarter: 2019Q3

REPORT INFORMATION
  Report Type: Spontaneous
  Country: FR (occurrence: FR)
  Receive Date: 20190812
  Receipt Date: 20190812
  Transmission Date: 20191004
  Serious: Yes (Hospitalization)
  Sender: FDA-Public Use
  Company Number: FR-ZYDUS-039544

PATIENT
  Age: 85 Year
  Sex: Male

DRUGS (13)
  1. LANTUS [Concomitant]
     Active Substance: INSULIN GLARGINE
  2. PERMIXON [Concomitant]
     Active Substance: HERBALS\SAW PALMETTO
  3. ADANCOR [Concomitant]
     Active Substance: NICORANDIL
  4. CARDENSIEL [Concomitant]
     Active Substance: BISOPROLOL FUMARATE
  5. DOLIPRANE [Concomitant]
     Active Substance: ACETAMINOPHEN
  6. RAMIPRIL. [Suspect]
     Active Substance: RAMIPRIL
     Indication: HYPERTENSION
     Route: 048
     Dates: end: 20190704
  7. TAHOR [Concomitant]
     Active Substance: ATORVASTATIN CALCIUM
  8. LANSOPRAZOLE. [Concomitant]
     Active Substance: LANSOPRAZOLE
  9. LEVOTHYROX [Concomitant]
     Active Substance: LEVOTHYROXINE
  10. HUMALOG [Concomitant]
     Active Substance: INSULIN LISPRO
  11. CETIRIZINE/CETIRIZINE HYDROCHLORIDE [Concomitant]
  12. MOVICOL [Concomitant]
     Active Substance: POLYETHYLENE GLYCOL 3350\POTASSIUM CHLORIDE\SODIUM BICARBONATE\SODIUM CHLORIDE
  13. KARDEGIC [Concomitant]
     Active Substance: ASPIRIN DL-LYSINE

REACTIONS (2)
  - Hyponatraemia [Recovered/Resolved]
  - Dehydration [Recovered/Resolved]

NARRATIVE: CASE EVENT DATE: 20190704
